FAERS Safety Report 4276707-6 (Version None)
Quarter: 2004Q1

REPORT INFORMATION
  Report Type: 
  Country: None (occurrence: None)
  Receive Date: 20040120
  Receipt Date: 20031015
  Transmission Date: 20041129
  Serious: Yes (Life-Threatening, Hospitalization)
  Sender: FDA-Public Use
  Company Number: 03-0076

PATIENT
  Age: 27 Year
  Sex: Male

DRUGS (6)
  1. PONSTEL [Suspect]
     Indication: ABDOMINAL PAIN
     Dosage: PO
     Route: 048
     Dates: start: 20030812, end: 20030913
  2. ZITHROMAX [Suspect]
     Indication: ENTERITIS
     Dosage: PO
     Route: 048
     Dates: start: 20030807, end: 20030910
  3. ZITHROMAX [Suspect]
     Indication: ENTEROCOLITIS INFECTIOUS
     Dosage: PO
     Route: 048
     Dates: start: 20030807, end: 20030910
  4. CIPROFLOXACIN [Suspect]
     Indication: ENTERITIS
     Dosage: 500MG BID PO
     Route: 048
     Dates: start: 20030903, end: 20030907
  5. CIPROFLOXACIN [Suspect]
     Indication: ENTEROCOLITIS INFECTIOUS
     Dosage: 500MG BID PO
     Route: 048
     Dates: start: 20030903, end: 20030907
  6. TRAMADOL HYDROCHLORIDE [Concomitant]

REACTIONS (7)
  - ABDOMINAL PAIN [None]
  - DIARRHOEA HAEMORRHAGIC [None]
  - HAEMOLYTIC URAEMIC SYNDROME [None]
  - HENOCH-SCHONLEIN PURPURA [None]
  - IDIOPATHIC THROMBOCYTOPENIC PURPURA [None]
  - MUCOPOLYSACCHARIDOSIS II [None]
  - VIRAL INFECTION [None]
